FAERS Safety Report 8738191 (Version 2)
Quarter: 2013Q4

REPORT INFORMATION
  Report Type: Spontaneous
  Country: SE (occurrence: SE)
  Receive Date: 20120823
  Receipt Date: 20131108
  Transmission Date: 20140711
  Serious: Yes (Hospitalization)
  Sender: FDA-Public Use
  Company Number: SE-009507513-1208SWE005814

PATIENT
  Age: 20 Year
  Sex: Female
  Weight: 40 kg

DRUGS (3)
  1. TRILAFON [Suspect]
     Dosage: UNK
     Route: 048
     Dates: start: 2012
  2. TRILAFON DECANOATE [Suspect]
     Dosage: UNK
     Dates: start: 2012
  3. CISORDINOL INJECTION [Suspect]
     Dosage: UNK
     Dates: start: 2012

REACTIONS (5)
  - Fatigue [Recovered/Resolved]
  - Abasia [Recovered/Resolved]
  - Muscular weakness [Recovered/Resolved]
  - Asthenia [Recovered/Resolved]
  - Dizziness [Recovered/Resolved]
